FAERS Safety Report 8221863-8 (Version None)
Quarter: 2012Q1

REPORT INFORMATION
  Report Type: 
  Country: None (occurrence: None)
  Receive Date: 20120320
  Receipt Date: 20120305
  Transmission Date: 20120608
  Serious: Yes (Hospitalization)
  Sender: FDA-Public Use
  Company Number: FR-WATSON-2012-04493

PATIENT
  Age: 39 Year
  Sex: Female

DRUGS (2)
  1. ALPRAZOLAM [Suspect]
     Indication: DEPRESSION
     Dosage: 45 MG, SINGLE
  2. VENLAFAXINE HYDROCHLORIDE [Suspect]
     Indication: DEPRESSION
     Dosage: 7.5 G, SINGLE

REACTIONS (4)
  - SEROTONIN SYNDROME [None]
  - HYPOGLYCAEMIA [None]
  - TOXICITY TO VARIOUS AGENTS [None]
  - OVERDOSE [None]
